FAERS Safety Report 5997615-6 (Version None)
Quarter: 2008Q4

REPORT INFORMATION
  Report Type: 
  Country: None (occurrence: None)
  Receive Date: 20081212
  Receipt Date: 20081210
  Transmission Date: 20090506
  Serious: Yes (Hospitalization)
  Sender: FDA-Public Use
  Company Number: US-PFIZER INC-2005147389

PATIENT
  Sex: Female
  Weight: 51 kg

DRUGS (15)
  1. SILDENAFIL CITRATE [Suspect]
     Indication: PULMONARY ARTERIAL HYPERTENSION
     Route: 048
     Dates: start: 20041221
  2. SALMETEROL [Concomitant]
     Indication: BRONCHIAL HYPERREACTIVITY
     Route: 055
  3. ALBUTEROL [Concomitant]
     Indication: BRONCHIAL HYPERREACTIVITY
     Route: 055
  4. CENTRUM [Concomitant]
     Route: 048
  5. DIGOXIN [Concomitant]
     Indication: PULMONARY ARTERIAL HYPERTENSION
     Route: 048
     Dates: start: 20010101
  6. LANSOPRAZOLE [Concomitant]
     Route: 048
  7. DICYCLOMINE [Concomitant]
     Route: 048
  8. TOPIRAMATE [Concomitant]
     Route: 048
  9. NASONEX [Concomitant]
     Route: 045
  10. ACETAMINOPHEN [Concomitant]
     Route: 048
     Dates: start: 20040904
  11. CETIRIZINE HCL [Concomitant]
     Route: 048
  12. COUMADIN [Concomitant]
     Indication: PULMONARY ARTERIAL HYPERTENSION
     Route: 048
     Dates: start: 20050103
  13. ACETAMINOPHEN W/ CODEINE [Concomitant]
     Indication: PAIN
     Route: 048
     Dates: start: 20050701
  14. FERROUS SULFATE TAB [Concomitant]
     Indication: BLEEDING TIME PROLONGED
     Route: 048
     Dates: start: 20050701
  15. TREPROSTINOL [Concomitant]
     Route: 058
     Dates: start: 20050701

REACTIONS (2)
  - ABDOMINAL PAIN [None]
  - PULMONARY HYPERTENSION [None]
